FAERS Safety Report 9818546 (Version 3)
Quarter: 2016Q3

REPORT INFORMATION
  Report Type: Report from Study
  Country: JP (occurrence: JP)
  Receive Date: 20140115
  Receipt Date: 20160823
  Transmission Date: 20161109
  Serious: Yes (Death, Hospitalization)
  Sender: FDA-Public Use
  Company Number: JP-PFIZER INC-2013312728

PATIENT
  Age: 32 Year
  Sex: Female
  Weight: 48 kg

DRUGS (36)
  1. PACLITAXEL. [Suspect]
     Active Substance: PACLITAXEL
     Dosage: 80 MG, 1X/DAY
     Dates: start: 20130326, end: 20130326
  2. OXYCONTIN [Concomitant]
     Active Substance: OXYCODONE HYDROCHLORIDE
     Dosage: 20 MG, 2X/DAY
     Route: 048
     Dates: start: 20130108, end: 20130725
  3. GOSHAJINKIGAN [Concomitant]
     Active Substance: HERBALS
     Dosage: 2.5 G, 3X/DAY
     Route: 048
     Dates: start: 20121212, end: 20130403
  4. PREDONINE [Concomitant]
     Active Substance: PREDNISOLONE\PREDNISOLONE ACETATE\PREDNISOLONE SODIUM SUCCINATE
     Dosage: 25 MG, 1X/DAY
     Dates: start: 20121226, end: 20130312
  5. GASMOTIN [Concomitant]
     Active Substance: MOSAPRIDE CITRATE
     Dosage: 5 MG, 3X/DAY
     Dates: end: 20120829
  6. AVASTIN [Suspect]
     Active Substance: BEVACIZUMAB
     Dosage: 660 MG, 1X/DAY
     Dates: start: 20130312, end: 20130312
  7. OPSO [Concomitant]
     Active Substance: MORPHINE HYDROCHLORIDE
     Dosage: 5 MG, AS NEEDED
     Route: 048
     Dates: start: 20121128
  8. MAGMITT [Concomitant]
     Active Substance: MAGNESIUM OXIDE
     Dosage: 330 MG, 3X/DAY
     Route: 048
     Dates: end: 20120821
  9. LENDORMIN D [Concomitant]
     Active Substance: BROTIZOLAM
     Dosage: 0.25 MG, AS NEEDED
     Route: 048
     Dates: start: 20121226, end: 20130725
  10. DEXAMETHASONE. [Concomitant]
     Active Substance: DEXAMETHASONE
     Dosage: 2 MG, 1X/DAY
     Route: 048
     Dates: end: 20121017
  11. CARBOPLATIN. [Suspect]
     Active Substance: CARBOPLATIN
     Dosage: 540 MG, 1X/DAY
     Dates: start: 20130312, end: 20130312
  12. AVASTIN [Suspect]
     Active Substance: BEVACIZUMAB
     Dosage: 660 MG, 1X/DAY
     Route: 042
     Dates: start: 20130207, end: 20130207
  13. LYRICA [Concomitant]
     Active Substance: PREGABALIN
     Dosage: 75 MG, 2X/DAY
     Route: 048
     Dates: start: 20121229, end: 20130505
  14. PREDONINE [Concomitant]
     Active Substance: PREDNISOLONE\PREDNISOLONE ACETATE\PREDNISOLONE SODIUM SUCCINATE
     Dosage: 30 MG, 1X/DAY
     Route: 048
     Dates: start: 20121214, end: 20121225
  15. ACICLOVIR [Concomitant]
     Active Substance: ACYCLOVIR
     Dosage: 250 MG, 3X/DAY
     Dates: start: 20130125, end: 20130131
  16. XALKORI [Suspect]
     Active Substance: CRIZOTINIB
     Indication: NON-SMALL CELL LUNG CANCER
     Dosage: 250 MG, 2X/DAY
     Route: 048
     Dates: start: 20120814, end: 20121212
  17. PACLITAXEL. [Suspect]
     Active Substance: PACLITAXEL
     Dosage: 80 MG, 1X/DAY
     Dates: start: 20130312, end: 20130312
  18. OXINORM (OXYCODONE HYDROCHLORIDE) [Concomitant]
     Active Substance: OXYCODONE HYDROCHLORIDE
     Dosage: 5 MG, AS NEEDED
     Route: 048
  19. PARIET [Concomitant]
     Active Substance: RABEPRAZOLE SODIUM
     Dosage: UNK
     Dates: end: 20130403
  20. CARBOPLATIN. [Suspect]
     Active Substance: CARBOPLATIN
     Indication: NON-SMALL CELL LUNG CANCER
     Dosage: 540 MG, 1X/DAY
     Dates: start: 20130207, end: 20130207
  21. CARBOPLATIN. [Suspect]
     Active Substance: CARBOPLATIN
     Dosage: 540 MG, 1X/DAY
     Dates: start: 20130326, end: 20130326
  22. VOLTAREN [Concomitant]
     Active Substance: DICLOFENAC SODIUM
     Dosage: 37.5 MG, 2X/DAY
     Route: 048
     Dates: end: 20120830
  23. OPSO [Concomitant]
     Active Substance: MORPHINE HYDROCHLORIDE
     Dosage: 10 MG, AS NEEDED
     Route: 048
  24. HYALEIN [Concomitant]
     Active Substance: HYALURONATE SODIUM
     Dosage: 1 DROP, AS NEEDED
     Route: 047
     Dates: end: 20130725
  25. OXYCONTIN [Concomitant]
     Active Substance: OXYCODONE HYDROCHLORIDE
     Dosage: 5 MG, 2X/DAY
     Route: 048
     Dates: start: 20130101, end: 20130107
  26. ARASENA A [Concomitant]
     Active Substance: VIDARABINE
     Dosage: UNK, 2X/DAY
     Route: 061
     Dates: start: 20130201, end: 20130226
  27. ZOMETA [Concomitant]
     Active Substance: ZOLEDRONIC ACID
     Dosage: 4 MG, 1X/DAY
     Dates: start: 20121217, end: 20121217
  28. OPSO [Concomitant]
     Active Substance: MORPHINE HYDROCHLORIDE
     Dosage: 5 MG, AS NEEDED
     Route: 048
     Dates: start: 20130427, end: 20130725
  29. MAGMITT [Concomitant]
     Active Substance: MAGNESIUM OXIDE
     Dosage: 330 MG, 3X/DAY
     Route: 048
     Dates: start: 20121107, end: 20130725
  30. DEXAMETHASONE. [Concomitant]
     Active Substance: DEXAMETHASONE
     Dosage: 1 MG, 1X/DAY
     Route: 048
     Dates: start: 20121018, end: 20121213
  31. XALKORI [Suspect]
     Active Substance: CRIZOTINIB
     Dosage: 250 MG, 2X/DAY
     Route: 048
     Dates: start: 20130117, end: 20130725
  32. PACLITAXEL. [Suspect]
     Active Substance: PACLITAXEL
     Indication: NON-SMALL CELL LUNG CANCER
     Dosage: 240 MG, 1X/DAY
     Route: 042
     Dates: start: 20130207, end: 20130207
  33. OXINORM (OXYCODONE HYDROCHLORIDE) [Concomitant]
     Active Substance: OXYCODONE HYDROCHLORIDE
     Dosage: 1 G, AS NEEDED
     Route: 048
     Dates: start: 20130104, end: 20130725
  34. CELECOX [Concomitant]
     Active Substance: CELECOXIB
     Dosage: 100 MG, 2X/DAY
     Route: 048
     Dates: end: 20130122
  35. RANMARK [Concomitant]
     Active Substance: DENOSUMAB
     Dosage: 120 MG, 1X/DAY
     Route: 058
     Dates: start: 20130117, end: 20130117
  36. VOLTAREN [Concomitant]
     Active Substance: DICLOFENAC SODIUM
     Dosage: 37.5 MG, 2X/DAY
     Route: 048
     Dates: start: 20130117, end: 20130219

REACTIONS (7)
  - Hypocalcaemia [Not Recovered/Not Resolved]
  - Non-small cell lung cancer [Fatal]
  - Vomiting [Recovered/Resolved]
  - Herpes zoster [Recovered/Resolved]
  - Febrile neutropenia [Recovering/Resolving]
  - Disease progression [Fatal]
  - Leukopenia [Recovered/Resolved]

NARRATIVE: CASE EVENT DATE: 20130125
